FAERS Safety Report 14056561 (Version 1)
Quarter: 2017Q4

REPORT INFORMATION
  Report Type: Spontaneous
  Country: IE (occurrence: IE)
  Receive Date: 20171006
  Receipt Date: 20171006
  Transmission Date: 20180321
  Serious: Yes (Other)
  Sender: FDA-Public Use
  Company Number: IE-AMGEN-IRLSP2017148666

PATIENT
  Age: 66 Year
  Sex: Female
  Weight: 51.66 kg

DRUGS (4)
  1. DESUNIN [Concomitant]
     Active Substance: CHOLECALCIFEROL
     Indication: VITAMIN D DEFICIENCY
     Dosage: 800 IU, UNK
     Dates: start: 20170817, end: 20170919
  2. PREDNISOLONE. [Concomitant]
     Active Substance: PREDNISOLONE
     Indication: SARCOIDOSIS
     Dosage: 4 MG, UNK
     Dates: start: 20170719, end: 20170916
  3. ESOMEPRAZOLE KRKA [Concomitant]
     Indication: GASTRIC PH DECREASED
     Dosage: 40 MG, UNK
     Dates: start: 20050901, end: 20170914
  4. PROLIA [Suspect]
     Active Substance: DENOSUMAB
     Indication: OSTEOPOROSIS POSTMENOPAUSAL
     Dosage: 60 MG, UNK
     Route: 058
     Dates: start: 20170817

REACTIONS (3)
  - Rash generalised [Recovered/Resolved]
  - Malaise [Recovered/Resolved]
  - Rash [Recovered/Resolved]

NARRATIVE: CASE EVENT DATE: 20170830
